FAERS Safety Report 7261754-2 (Version None)
Quarter: 2011Q1

REPORT INFORMATION
  Report Type: 
  Country: None (occurrence: None)
  Receive Date: 20110130
  Receipt Date: 20101104
  Transmission Date: 20110831
  Serious: No
  Sender: FDA-Public Use
  Company Number: US-ABBOTT-10P-163-0683314-00

PATIENT
  Age: 26 Year
  Sex: Female

DRUGS (1)
  1. HUMIRA [Suspect]
     Indication: COLITIS ULCERATIVE
     Dates: start: 20100920

REACTIONS (5)
  - INJECTION SITE PAIN [None]
  - INJECTION SITE WARMTH [None]
  - FEELING HOT [None]
  - INJECTION SITE URTICARIA [None]
  - DYSPNOEA [None]
